FAERS Safety Report 5423050-5 (Version None)
Quarter: 2007Q3

REPORT INFORMATION
  Report Type: 
  Country: None (occurrence: None)
  Receive Date: 20070822
  Receipt Date: 20070810
  Transmission Date: 20080115
  Serious: Yes (Other)
  Sender: FDA-Public Use
  Company Number: US-PFIZER INC-2007067953

PATIENT
  Sex: Male
  Weight: 56.7 kg

DRUGS (2)
  1. LYRICA [Suspect]
     Indication: BURNING SENSATION
     Dates: start: 20070501, end: 20070501
  2. GLUCOTROL [Concomitant]

REACTIONS (4)
  - CONFUSIONAL STATE [None]
  - DISTURBANCE IN ATTENTION [None]
  - HEARING IMPAIRED [None]
  - VISUAL DISTURBANCE [None]
